FAERS Safety Report 8721970 (Version 2)
Quarter: 2012Q4

REPORT INFORMATION
  Report Type: 
  Country: PK (occurrence: PK)
  Receive Date: 20120814
  Receipt Date: 20120914
  Transmission Date: 20130627
  Serious: Yes (Hospitalization)
  Sender: FDA-Public Use
  Company Number: PK-GENZYME-FLUD-1001541

PATIENT
  Age: 40 Year
  Sex: Female

DRUGS (3)
  1. FLUDARA [Suspect]
     Indication: CHRONIC LYMPHOCYTIC LEUKAEMIA
     Dosage: 53.4mg/28day
     Route: 042
     Dates: start: 20120608, end: 20120610
  2. SEPTRIN [Concomitant]
     Indication: PRODUCT USED FOR UNKNOWN INDICATION
     Dosage: 960 mg, UNK
     Route: 065
  3. ALLOPURINOL [Concomitant]
     Indication: PRODUCT USED FOR UNKNOWN INDICATION
     Dosage: 300 mg, qd
     Route: 065

REACTIONS (3)
  - Dyspnoea [Recovered/Resolved]
  - Renal failure [Recovered/Resolved with Sequelae]
  - Tumour lysis syndrome [Recovered/Resolved with Sequelae]
